FAERS Safety Report 5035396-3 (Version None)
Quarter: 2006Q2

REPORT INFORMATION
  Report Type: 
  Country: None (occurrence: None)
  Receive Date: 20060525
  Receipt Date: 20060215
  Transmission Date: 20061013
  Serious: No
  Sender: FDA-Public Use
  Company Number: 2006US002846

PATIENT
  Sex: Male

DRUGS (3)
  1. ALOXI [Suspect]
     Indication: PROPHYLAXIS OF NAUSEA AND VOMITING
     Dosage: 1 DF, SINGLE, IV DRIP
     Route: 041
  2. ATROPINE [Suspect]
     Dosage: 0.4 MG,SINGLE, INTRAVENOUS
     Route: 042
  3. DECADRON [Concomitant]

REACTIONS (2)
  - BLEPHAROSPASM [None]
  - MUSCLE TWITCHING [None]
